FAERS Safety Report 9645435 (Version 5)
Quarter: 2013Q4

REPORT INFORMATION
  Report Type: Spontaneous
  Country: US (occurrence: US)
  Receive Date: 20131025
  Receipt Date: 20131227
  Transmission Date: 20140711
  Serious: Yes (Hospitalization, Other)
  Sender: FDA-Public Use
  Company Number: US-009507513-1003USA03547

PATIENT
  Sex: Female
  Weight: 74.84 kg

DRUGS (10)
  1. FOSAMAX [Suspect]
     Indication: OSTEOPOROSIS
     Dosage: 70 MG, QW
     Route: 048
     Dates: start: 20011006, end: 20011227
  2. FOSAMAX [Suspect]
     Dosage: 70 MG, UNK
     Route: 048
     Dates: start: 20051023, end: 20080115
  3. ALENDRONATE SODIUM [Suspect]
     Indication: OSTEOPOROSIS
     Dosage: 70 MG, UNK
     Route: 048
     Dates: start: 20080630, end: 20100207
  4. ACTOS [Concomitant]
     Indication: DIABETES MELLITUS
     Dosage: 40 MG, UNK
     Route: 048
  5. PRAVASTATIN SODIUM [Concomitant]
     Indication: DYSLIPIDAEMIA
     Dosage: 20 MG, HS
     Route: 048
  6. PRINIVIL [Concomitant]
     Indication: HYPERTENSION
     Dosage: 10 MG, QD
     Route: 048
  7. VITAMIN E [Concomitant]
     Dosage: UNK, UNK
     Dates: start: 1991
  8. VITAMIN C [Concomitant]
     Dosage: UNK
     Dates: start: 1991
  9. CALCIUM (UNSPECIFIED) [Concomitant]
     Dosage: UNK
     Dates: start: 1991
  10. VITAMINS (UNSPECIFIED) [Concomitant]

REACTIONS (15)
  - Intramedullary rod insertion [Unknown]
  - Intramedullary rod insertion [Unknown]
  - Femur fracture [Recovering/Resolving]
  - Femur fracture [Unknown]
  - Foot fracture [Unknown]
  - Tooth extraction [Unknown]
  - Arthritis [Unknown]
  - Enthesopathy [Unknown]
  - Senile osteoporosis [Unknown]
  - Bursitis [Unknown]
  - Oligomenorrhoea [Unknown]
  - Contusion [Unknown]
  - Ligament sprain [Unknown]
  - Foot fracture [Unknown]
  - Arthralgia [Unknown]
